FAERS Safety Report 7260753-4 (Version None)
Quarter: 2011Q1

REPORT INFORMATION
  Report Type: 
  Country: None (occurrence: None)
  Receive Date: 20110130
  Receipt Date: 20101227
  Transmission Date: 20110831
  Serious: No
  Sender: FDA-Public Use
  Company Number: US-ABBOTT-10P-163-0693428-00

PATIENT
  Sex: Male
  Weight: 65.83 kg

DRUGS (1)
  1. HUMIRA [Suspect]
     Indication: CROHN'S DISEASE
     Dosage: 1ST DOSE
     Dates: start: 20101227

REACTIONS (3)
  - COLD SWEAT [None]
  - DIZZINESS [None]
  - NAUSEA [None]
